FAERS Safety Report 15710168 (Version 1)
Quarter: 2018Q4

REPORT INFORMATION
  Report Type: Report from Study
  Country: US (occurrence: US)
  Receive Date: 20181211
  Receipt Date: 20181211
  Transmission Date: 20190205
  Serious: Yes (Death)
  Sender: FDA-Public Use
  Company Number: US-MYLANLABS-2018M1089995

PATIENT
  Age: 75 Year
  Sex: Male

DRUGS (9)
  1. VINCRISTINE [Suspect]
     Active Substance: VINCRISTINE
     Indication: MANTLE CELL LYMPHOMA
     Dosage: AS A PART OF R-CHOP REGIMEN
     Route: 065
  2. DOXORUBICIN [Suspect]
     Active Substance: DOXORUBICIN
     Indication: MANTLE CELL LYMPHOMA
     Dosage: AS A PART OF R-CHOP REGIMEN
     Route: 065
  3. CYCLOPHOSPHAMIDE. [Suspect]
     Active Substance: CYCLOPHOSPHAMIDE
     Indication: MANTLE CELL LYMPHOMA
     Dosage: AS A PART OF R-CHOP REGIMEN
     Route: 065
  4. IBRUTINIB [Suspect]
     Active Substance: IBRUTINIB
     Indication: MANTLE CELL LYMPHOMA
     Route: 065
  5. BORTEZOMIB. [Suspect]
     Active Substance: BORTEZOMIB
     Indication: MANTLE CELL LYMPHOMA
     Route: 065
  6. PREDNISONE. [Suspect]
     Active Substance: PREDNISONE
     Indication: MANTLE CELL LYMPHOMA
     Dosage: AS A PART OF R-CHOP REGIMEN
     Route: 065
  7. VENETOCLAX. [Suspect]
     Active Substance: VENETOCLAX
     Indication: MANTLE CELL LYMPHOMA
     Route: 065
  8. RITUXIMAB. [Suspect]
     Active Substance: RITUXIMAB
     Indication: MANTLE CELL LYMPHOMA
     Dosage: AS A PART OF R-CHOP REGIMEN
     Route: 065
  9. CUDC 907 [Suspect]
     Active Substance: FIMEPINOSTAT
     Indication: MANTLE CELL LYMPHOMA
     Route: 065

REACTIONS (1)
  - Bronchopulmonary aspergillosis [Fatal]
